FAERS Safety Report 15291138 (Version 1)
Quarter: 2018Q3

REPORT INFORMATION
  Report Type: Spontaneous
  Country: DE (occurrence: DE)
  Receive Date: 20180817
  Receipt Date: 20180817
  Transmission Date: 20181010
  Serious: Yes (Other)
  Sender: FDA-Public Use
  Company Number: DE-TEVA-2018-DE-897763

PATIENT
  Sex: Female
  Weight: 62 kg

DRUGS (1)
  1. CIPROFLOXACIN. [Suspect]
     Active Substance: CIPROFLOXACIN
     Route: 065
     Dates: start: 20180313, end: 20180315

REACTIONS (37)
  - Panic attack [Unknown]
  - Limb discomfort [Unknown]
  - Fatigue [Unknown]
  - Visual impairment [Unknown]
  - Burning sensation [Unknown]
  - Joint noise [Unknown]
  - Myalgia [Unknown]
  - Palpitations [Unknown]
  - Back pain [Unknown]
  - Sensory level abnormal [Unknown]
  - Anxiety disorder [Unknown]
  - Restlessness [Unknown]
  - Depression [Unknown]
  - Arthralgia [Unknown]
  - Asthenia [Not Recovered/Not Resolved]
  - Night sweats [Unknown]
  - Hypoaesthesia [Not Recovered/Not Resolved]
  - Hypoaesthesia [Unknown]
  - Vulvovaginal burning sensation [Unknown]
  - Myosclerosis [Unknown]
  - Weight decreased [Not Recovered/Not Resolved]
  - Muscle twitching [Unknown]
  - Vomiting [Unknown]
  - Headache [Unknown]
  - Tendon pain [Unknown]
  - Thyroid function test abnormal [Unknown]
  - Suicidal ideation [Unknown]
  - Neuropathy peripheral [Unknown]
  - Dizziness [Unknown]
  - Abdominal discomfort [Unknown]
  - Neuralgia [Not Recovered/Not Resolved]
  - Sleep disorder [Unknown]
  - Nightmare [Unknown]
  - Micturition urgency [Unknown]
  - Decreased appetite [Unknown]
  - Muscular weakness [Unknown]
  - Blood glucose abnormal [Unknown]
